FAERS Safety Report 8105776-8 (Version None)
Quarter: 2012Q1

REPORT INFORMATION
  Report Type: 
  Country: None (occurrence: None)
  Receive Date: 20120201
  Receipt Date: 20120131
  Transmission Date: 20120608
  Serious: Yes (Other)
  Sender: FDA-Public Use
  Company Number: US-PFIZER INC-2012027154

PATIENT
  Sex: Male
  Weight: 81.633 kg

DRUGS (4)
  1. LISINOPRIL [Concomitant]
     Indication: HYPERTENSION
     Dosage: 10 MG,DAILY
  2. CHANTIX [Suspect]
     Indication: SMOKING CESSATION THERAPY
     Dosage: 0.5 MG, DAILY
     Route: 048
     Dates: start: 20120101
  3. XANAX [Concomitant]
     Indication: ANXIETY
     Dosage: UNK
  4. CHANTIX [Suspect]
     Dosage: 1 MG, 2X/DAY
     Route: 048
     Dates: start: 20120101

REACTIONS (5)
  - ABNORMAL DREAMS [None]
  - MOOD SWINGS [None]
  - IRRITABILITY [None]
  - DEPRESSION [None]
  - DRUG INEFFECTIVE [None]
